FAERS Safety Report 10439758 (Version 1)
Quarter: 2014Q3

REPORT INFORMATION
  Report Type: Spontaneous
  Country: US (occurrence: US)
  Receive Date: 20140908
  Receipt Date: 20140908
  Transmission Date: 20150326
  Serious: Yes (Other)
  Sender: FDA-Public Use
  Company Number: US-BRISTOL-MYERS SQUIBB COMPANY-20008090

PATIENT
  Age: 51 Year
  Sex: Female
  Weight: 84.35 kg

DRUGS (5)
  1. ABILIFY [Suspect]
     Active Substance: ARIPIPRAZOLE
     Indication: BIPOLAR DISORDER
  2. TRILEPTAL [Concomitant]
     Active Substance: OXCARBAZEPINE
     Indication: CONVULSION
     Dosage: 600MG QHS AND 300MG QAM
  3. VITAMIN D [Concomitant]
     Active Substance: CHOLECALCIFEROL
     Dosage: 1 DF = 5000 IU
  4. PLAVIX [Concomitant]
     Active Substance: CLOPIDOGREL BISULFATE
     Indication: TRANSIENT ISCHAEMIC ATTACK
     Dates: start: 2004
  5. LISINOPRIL. [Concomitant]
     Active Substance: LISINOPRIL
     Indication: HYPERTENSION

REACTIONS (5)
  - Suicidal ideation [Unknown]
  - Convulsion [Unknown]
  - Drug dose omission [Unknown]
  - Influenza [Unknown]
  - Transient ischaemic attack [Unknown]
